FAERS Safety Report 5887508-7 (Version None)
Quarter: 2008Q3

REPORT INFORMATION
  Report Type: 
  Country: None (occurrence: None)
  Receive Date: 20080917
  Receipt Date: 20080917
  Transmission Date: 20090109
  Serious: Yes (Other)
  Sender: FDA-Public Use
  Company Number: None

PATIENT
  Sex: Male
  Weight: 101.5 kg

DRUGS (18)
  1. TAXOTERE [Suspect]
     Indication: PROSTATE CANCER
     Dosage: 143MGIVBP
     Route: 042
     Dates: start: 20080529, end: 20080903
  2. BEVACIZUMAB 15MG/KG [Suspect]
     Indication: PROSTATE CANCER
     Dosage: 1373 MGIVBP
     Route: 042
     Dates: start: 20080529, end: 20080915
  3. RAD001 5MG [Suspect]
     Indication: PROSTATE CANCER
     Dosage: 5MG PO
     Route: 048
     Dates: start: 20080529, end: 20080915
  4. LUPRON [Concomitant]
  5. MULTI VIT [Concomitant]
  6. ASPIRIN [Concomitant]
  7. OSCAL D [Concomitant]
  8. ZOMETA [Concomitant]
  9. TYLENOL (CAPLET) [Concomitant]
  10. ADVIL [Concomitant]
  11. COLACE [Concomitant]
  12. ZOFRAN [Concomitant]
  13. COMPAZINE [Concomitant]
  14. SENOKOT [Concomitant]
  15. DECADRON SRC [Concomitant]
  16. ALEVE [Concomitant]
  17. MMX [Concomitant]
  18. IMODIUM [Concomitant]

REACTIONS (2)
  - NEUTROPENIA [None]
  - PYREXIA [None]
